FAERS Safety Report 15511757 (Version 1)
Quarter: 2018Q4

REPORT INFORMATION
  Report Type: Spontaneous
  Country: US (occurrence: US)
  Receive Date: 20181017
  Receipt Date: 20181017
  Transmission Date: 20190205
  Serious: Yes (Death)
  Sender: FDA-Public Use
  Company Number: None

PATIENT
  Age: 59 Year
  Sex: Male

DRUGS (12)
  1. CAPECITABINE. [Suspect]
     Active Substance: CAPECITABINE
     Indication: PANCREATIC CARCINOMA
     Dosage: ?          OTHER FREQUENCY:2X A DAY/1 WEEK;?
     Route: 048
  2. ZOFRAN 8MG [Concomitant]
  3. LASIX 40MG [Concomitant]
  4. AMBIEN [Concomitant]
     Active Substance: ZOLPIDEM TARTRATE
  5. TRANSDERM-SC 1.5MG [Concomitant]
  6. SPIRONOLACT 25MG [Concomitant]
  7. XARELTO [Concomitant]
     Active Substance: RIVAROXABAN
  8. CREON 6000UNIT [Concomitant]
  9. MORPHINE SULF 15MG AND 30MG [Concomitant]
  10. PRILOSEC [Concomitant]
     Active Substance: OMEPRAZOLE MAGNESIUM
  11. REGLAN 5MG [Concomitant]
  12. FENTANYL. [Concomitant]
     Active Substance: FENTANYL

REACTIONS (1)
  - Death [None]

NARRATIVE: CASE EVENT DATE: 20181008
